FAERS Safety Report 11238946 (Version 1)
Quarter: 2015Q3

REPORT INFORMATION
  Report Type: Spontaneous
  Country: DE (occurrence: DE)
  Receive Date: 20150706
  Receipt Date: 20150706
  Transmission Date: 20151125
  Serious: Yes (Hospitalization, Other)
  Sender: FDA-Public Use
  Company Number: DE-DRREDDYS-GER/GER/15/0049100

PATIENT
  Age: 64 Year
  Sex: Male
  Weight: 95 kg

DRUGS (10)
  1. ORFIRIL [Interacting]
     Active Substance: VALPROIC ACID
     Indication: AFFECTIVE DISORDER
     Route: 048
     Dates: start: 20140722
  2. TAVOR [Concomitant]
     Active Substance: LORAZEPAM
     Indication: RESTLESSNESS
     Route: 048
  3. TROSPIUM [Concomitant]
     Active Substance: TROSPIUM
     Indication: PRODUCT USED FOR UNKNOWN INDICATION
     Route: 048
  4. SERTRALINE [Suspect]
     Active Substance: SERTRALINE HYDROCHLORIDE
     Indication: DEPRESSION
     Route: 048
     Dates: start: 20140811
  5. SERTRALINE [Interacting]
     Active Substance: SERTRALINE HYDROCHLORIDE
     Route: 048
     Dates: end: 20141216
  6. PANTOPRAZOLE [Concomitant]
     Active Substance: PANTOPRAZOLE SODIUM
     Indication: PRODUCT USED FOR UNKNOWN INDICATION
     Route: 048
  7. PROPRANOLOLE [Concomitant]
     Indication: TREMOR
     Route: 048
  8. SEROQUEL [Interacting]
     Active Substance: QUETIAPINE FUMARATE
     Indication: PSYCHOTIC DISORDER
     Route: 048
     Dates: start: 20140722
  9. LEVOTHYROXINE SODIUM. [Concomitant]
     Active Substance: LEVOTHYROXINE SODIUM
     Indication: THYROID DISORDER
     Route: 048
  10. SERTRALINE [Interacting]
     Active Substance: SERTRALINE HYDROCHLORIDE
     Route: 048
     Dates: start: 20141217, end: 20150415

REACTIONS (7)
  - Disorientation [Recovered/Resolved]
  - Serotonin syndrome [Recovered/Resolved]
  - Personality change [Recovered/Resolved]
  - Aggression [Recovered/Resolved]
  - Drug interaction [Unknown]
  - Dysphoria [Recovered/Resolved]
  - Suicidal ideation [Recovered/Resolved]

NARRATIVE: CASE EVENT DATE: 20150408
